FAERS Safety Report 9060119 (Version 1)
Quarter: 2013Q1

REPORT INFORMATION
  Report Type: Spontaneous
  Country: US (occurrence: US)
  Receive Date: 20130212
  Receipt Date: 20130212
  Transmission Date: 20140127
  Serious: Yes (Hospitalization)
  Sender: FDA-Public Use
  Company Number: US-BAYER-2013-017202

PATIENT
  Age: 46 Year
  Sex: Female

DRUGS (3)
  1. YAZ [Suspect]
  2. DICLOFENAC SODIUM [Concomitant]
  3. PRINZIDE [Concomitant]
     Dosage: 10-12.5 MG

REACTIONS (1)
  - Pulmonary embolism [None]
